FAERS Safety Report 6879631-5 (Version None)
Quarter: 2010Q3

REPORT INFORMATION
  Report Type: 
  Country: None (occurrence: None)
  Receive Date: 20100727
  Receipt Date: 20091218
  Transmission Date: 20110219
  Serious: No
  Sender: FDA-Public Use
  Company Number: US-ABBOTT-09P-163-0616362-00

PATIENT
  Sex: Female
  Weight: 59.02 kg

DRUGS (6)
  1. SYNTHROID [Suspect]
     Indication: HYPOTHYROIDISM
     Route: 048
     Dates: start: 19790101, end: 20091201
  2. SYNTHROID [Suspect]
     Route: 048
     Dates: start: 20091201
  3. PRESERVISION VITAMIN [Concomitant]
     Indication: EYE DISORDER
     Dates: start: 20090601, end: 20091101
  4. SIMVASTATIN [Concomitant]
     Indication: PRODUCT USED FOR UNKNOWN INDICATION
     Route: 048
  5. VITAMIN D [Concomitant]
     Indication: VITAMIN D DEFICIENCY
     Route: 048
  6. CALCIUM CITRATE WITH MAGNESIUM [Concomitant]
     Indication: PRODUCT USED FOR UNKNOWN INDICATION
     Route: 048

REACTIONS (2)
  - BLOOD THYROID STIMULATING HORMONE INCREASED [None]
  - EXPIRED DRUG ADMINISTERED [None]
